FAERS Safety Report 8982968 (Version 1)
Quarter: 2012Q4

REPORT INFORMATION
  Report Type: Report from Study
  Country: CH (occurrence: DE)
  Receive Date: 20121224
  Receipt Date: 20121224
  Transmission Date: 20130627
  Serious: Yes (Hospitalization)
  Sender: FDA-Public Use
  Company Number: DE-BRISTOL-MYERS SQUIBB COMPANY-17213364

PATIENT
  Age: 72 Year
  Sex: Female
  Weight: 62 kg

DRUGS (4)
  1. PACLITAXEL [Suspect]
     Indication: BREAST CANCER
     Dosage: Last dose: 23Mar2010
     Route: 042
     Dates: start: 20100112
  2. CAPECITABINE [Suspect]
     Indication: BREAST CANCER
     Dosage: Last dose: 23Mar2010
Tab
2 Divided doses
     Route: 048
     Dates: start: 20100112
  3. ENALAPRIL [Concomitant]
     Dates: start: 20070101
  4. XALATAN [Concomitant]
     Dates: start: 20070101

REACTIONS (2)
  - Thrombophlebitis [Recovered/Resolved]
  - Vascular injury [Recovered/Resolved]
